FAERS Safety Report 5914112-4 (Version None)
Quarter: 2008Q4

REPORT INFORMATION
  Report Type: 
  Country: None (occurrence: None)
  Receive Date: 20081009
  Receipt Date: 20080930
  Transmission Date: 20090506
  Serious: Yes (Other)
  Sender: FDA-Public Use
  Company Number: US-WYE-H06182908

PATIENT
  Sex: Female
  Weight: 77.18 kg

DRUGS (7)
  1. EFFEXOR XR [Suspect]
     Indication: DEPRESSION
     Route: 048
     Dates: start: 20030101, end: 20080818
  2. SYNTHROID [Concomitant]
     Dosage: UNKNOWN
  3. ACETYLSALICYLIC ACID SRT [Concomitant]
  4. LIPITOR [Concomitant]
     Dosage: UNKNOWN
  5. ELAVIL [Concomitant]
     Dosage: UNKNOWN
  6. INSULIN [Concomitant]
     Dosage: UNKNOWN
  7. PLAVIX [Concomitant]
     Dosage: UNKNOWN

REACTIONS (3)
  - ABNORMAL BEHAVIOUR [None]
  - DRUG WITHDRAWAL SYNDROME [None]
  - THINKING ABNORMAL [None]
